FAERS Safety Report 6619339-4 (Version None)
Quarter: 2010Q1

REPORT INFORMATION
  Report Type: 
  Country: None (occurrence: None)
  Receive Date: 20100308
  Receipt Date: 20090501
  Transmission Date: 20100710
  Serious: No
  Sender: FDA-Public Use
  Company Number: US-TYCO HEALTHCARE/MALLINCKRODT-T200900974

PATIENT
  Age: 77 Year
  Sex: Male
  Weight: 88 kg

DRUGS (3)
  1. TEMAZEPAM [Suspect]
     Indication: SLEEP DISORDER
     Dosage: 30 MG (15 MG/2 CAP) QHS
     Route: 048
     Dates: start: 20040101
  2. LISINOPRIL [Concomitant]
     Indication: HYPERTENSION
     Dosage: 40 MG, QD
     Route: 048
  3. LORATADINE [Concomitant]
     Indication: RHINITIS ALLERGIC
     Dosage: UNK
     Route: 048

REACTIONS (4)
  - FEELING ABNORMAL [None]
  - INSOMNIA [None]
  - MEMORY IMPAIRMENT [None]
  - THERAPY REGIMEN CHANGED [None]
